FAERS Safety Report 9116027 (Version 1)
Quarter: 2013Q1

REPORT INFORMATION
  Report Type: Spontaneous
  Country: US (occurrence: US)
  Receive Date: 20130225
  Receipt Date: 20130225
  Transmission Date: 20140127
  Serious: Yes (Other)
  Sender: FDA-Public Use
  Company Number: US-BAYER-2013-023435

PATIENT
  Sex: Female
  Weight: 56.69 kg

DRUGS (16)
  1. BETASERON [Suspect]
     Dosage: 0.25 MG, QOD
     Route: 058
  2. SLOW FE TAB 142 MG [Concomitant]
  3. FISH OIL CAP [Concomitant]
  4. TYLENOL [PARACETAMOL] [Concomitant]
  5. CRANBERRY [Concomitant]
  6. CLARITIN [Concomitant]
     Dosage: 10 MG, UNK
  7. B12 [Concomitant]
  8. NEXIUM [Concomitant]
     Dosage: 40 MG, UNK
  9. XANAX [Concomitant]
     Dosage: 0.5 MG, UNK
  10. AMBIEN [Concomitant]
     Dosage: 6.25 MG, UNK
  11. VALTREX [Concomitant]
     Dosage: 500 MG, UNK
  12. TREXIMET [Concomitant]
  13. PROMETRIUM [Concomitant]
     Dosage: 200 MG, UNK
  14. TRIMETHOPRIM [Concomitant]
  15. PROBIOTICS [Concomitant]
  16. CALCIUM +VIT D [Concomitant]

REACTIONS (5)
  - Urinary tract infection [Unknown]
  - Fungal infection [Unknown]
  - Pyrexia [None]
  - Asthenia [None]
  - Gait disturbance [None]
